FAERS Safety Report 20546520 (Version 1)
Quarter: 2022Q1

REPORT INFORMATION
  Report Type: Spontaneous
  Country: US (occurrence: US)
  Receive Date: 20220303
  Receipt Date: 20220303
  Transmission Date: 20220423
  Serious: Yes (Other)
  Sender: FDA-Public Use
  Company Number: US-SA-2022SA063779

PATIENT
  Age: 66 Year
  Sex: Female

DRUGS (7)
  1. LEFLUNOMIDE [Suspect]
     Active Substance: LEFLUNOMIDE
     Indication: Rheumatoid arthritis
     Dosage: UNK
  2. HYDROCHLOROTHIAZIDE [Concomitant]
     Active Substance: HYDROCHLOROTHIAZIDE
     Indication: Hypertension
     Dosage: UNK
  3. VALSARTAN [Concomitant]
     Active Substance: VALSARTAN
     Indication: Hypertension
     Dosage: UNK
  4. PREDNISONE [Concomitant]
     Active Substance: PREDNISONE
     Indication: Rheumatoid arthritis
     Dosage: SHORT COURSE
  5. PREDNISONE [Concomitant]
     Active Substance: PREDNISONE
     Indication: Polymyositis
     Dosage: 60 MG, QD
     Route: 048
  6. PREDNISONE [Concomitant]
     Active Substance: PREDNISONE
     Indication: Myopathy
  7. LEVOTHYROXINE [Concomitant]
     Active Substance: LEVOTHYROXINE
     Indication: Hypothyroidism
     Dosage: UNK

REACTIONS (8)
  - Polymyositis [Recovering/Resolving]
  - Musculoskeletal toxicity [Recovering/Resolving]
  - Muscular weakness [Recovering/Resolving]
  - Fall [Recovering/Resolving]
  - Gait disturbance [Recovering/Resolving]
  - Rhabdomyolysis [Unknown]
  - Myopathy [Unknown]
  - Muscle atrophy [Unknown]
